FAERS Safety Report 6751062-8 (Version None)
Quarter: 2010Q2

REPORT INFORMATION
  Report Type: 
  Country: None (occurrence: None)
  Receive Date: 20100602
  Receipt Date: 20100519
  Transmission Date: 20101027
  Serious: Yes (Other)
  Sender: FDA-Public Use
  Company Number: PHHY2010TW34035

PATIENT
  Age: 26 Year
  Sex: Female

DRUGS (6)
  1. CLOZAPINE [Suspect]
     Dosage: 50 MG, QD
  2. AMISULPRIDE [Suspect]
     Indication: SCHIZOPHRENIA
     Dosage: 200-400 MG/DAY
  3. BIPERIDEN HYDROCHLORIDE TAB [Suspect]
     Dosage: 1.5 MG, QD
  4. LORAZEPAM [Suspect]
     Dosage: 1.5 MG, QD
  5. QUETIAPINE [Suspect]
     Dosage: 200 MG, QD
  6. ARIPIPRAZOLE [Suspect]
     Dosage: 10 MG, QD

REACTIONS (9)
  - ANXIETY [None]
  - DYSPHAGIA [None]
  - DYSPHONIA [None]
  - DYSPNOEA [None]
  - MYASTHENIA GRAVIS [None]
  - PSYCHOTIC DISORDER [None]
  - RESPIRATORY FAILURE [None]
  - SALIVARY HYPERSECRETION [None]
  - TARDIVE DYSKINESIA [None]
